FAERS Safety Report 21374542 (Version 1)
Quarter: 2022Q3

REPORT INFORMATION
  Report Type: Spontaneous
  Country: CA (occurrence: CA)
  Receive Date: 20220926
  Receipt Date: 20220926
  Transmission Date: 20221026
  Serious: Yes (Other)
  Sender: FDA-Public Use
  Company Number: CA-JNJFOC-20220945299

PATIENT
  Age: 41 Year
  Sex: Female

DRUGS (3)
  1. INVOKANA [Suspect]
     Active Substance: CANAGLIFLOZIN
     Indication: Type 2 diabetes mellitus
     Route: 048
  2. VICTOZA [Suspect]
     Active Substance: LIRAGLUTIDE
     Indication: Type 2 diabetes mellitus
     Dosage: MULTIDOSE PEN-INJECTOR. 30DOSES(0.6MG)-15DOSES(1.2MG)-10DOSES(1.8MG)
     Route: 058
  3. VICTOZA [Suspect]
     Active Substance: LIRAGLUTIDE
     Dosage: MULTIDOSE PEN-INJECTOR. 30DOSES(0.6MG)-15DOSES(1.2MG)-10DOSES(1.8MG)
     Route: 058

REACTIONS (4)
  - Fall [Recovered/Resolved]
  - Blood pressure increased [Recovered/Resolved]
  - Joint injury [Recovered/Resolved]
  - Nausea [Recovered/Resolved]
